FAERS Safety Report 8034327-1 (Version None)
Quarter: 2012Q1

REPORT INFORMATION
  Report Type: 
  Country: None (occurrence: None)
  Receive Date: 20120110
  Receipt Date: 20120104
  Transmission Date: 20120608
  Serious: Yes (Other)
  Sender: FDA-Public Use
  Company Number: PHEH2012US000731

PATIENT
  Age: 75 Year
  Sex: Female
  Weight: 67.986 kg

DRUGS (7)
  1. ATENOLOL [Concomitant]
     Dosage: UNK UKN, UNK
  2. KEPPRA [Concomitant]
     Dosage: UNK UKN, UNK
  3. GILENYA [Suspect]
     Dosage: UNK UKN, UNK
  4. AMANTADINE HCL [Concomitant]
     Dosage: UNK UKN, UNK
  5. AMPYRA [Suspect]
     Indication: MULTIPLE SCLEROSIS
     Dosage: 10 MG, BID
     Route: 048
     Dates: start: 20110501, end: 20110611
  6. ASPIRIN [Concomitant]
     Dosage: UNK UKN, UNK
  7. EVISTA [Concomitant]
     Dosage: UNK UKN, UNK

REACTIONS (4)
  - COGNITIVE DISORDER [None]
  - DRUG INEFFECTIVE [None]
  - CONVULSION [None]
  - ASTHENIA [None]
